FAERS Safety Report 11144410 (Version 3)
Quarter: 2015Q3

REPORT INFORMATION
  Report Type: Spontaneous
  Country: US (occurrence: US)
  Receive Date: 20150526
  Receipt Date: 20150828
  Transmission Date: 20151125
  Serious: Yes (Hospitalization)
  Sender: FDA-Public Use
  Company Number: US-PFIZER INC-2014115139

PATIENT
  Age: 63 Year
  Sex: Male
  Weight: 70.3 kg

DRUGS (3)
  1. SUTENT [Suspect]
     Active Substance: SUNITINIB MALATE
     Dosage: 37.5 MG, CYCLIC (DAILY 21/7)
     Dates: start: 20140301, end: 201507
  2. SUTENT [Suspect]
     Active Substance: SUNITINIB MALATE
     Indication: THYMOMA MALIGNANT
     Dosage: 37.5 MG, DAILY
     Dates: start: 20140201
  3. STIVARGA [Concomitant]
     Active Substance: REGORAFENIB
     Dosage: UNK
     Dates: start: 201507

REACTIONS (9)
  - Disease progression [Unknown]
  - Swelling face [Unknown]
  - Thymoma malignant [Unknown]
  - Pyrexia [Recovered/Resolved]
  - Epistaxis [Unknown]
  - Fatigue [Not Recovered/Not Resolved]
  - Asthenopia [Recovered/Resolved]
  - Eye pain [Recovered/Resolved]
  - Product use issue [Recovered/Resolved]

NARRATIVE: CASE EVENT DATE: 201505
